FAERS Safety Report 7764731-8 (Version None)
Quarter: 2011Q3

REPORT INFORMATION
  Report Type: 
  Country: None (occurrence: None)
  Receive Date: 20110921
  Receipt Date: 20110919
  Transmission Date: 20111222
  Serious: Yes (Death, Hospitalization, Other)
  Sender: FDA-Public Use
  Company Number: CA-PFIZER INC-2011207838

PATIENT
  Age: 61 Year
  Sex: Female
  Weight: 66 kg

DRUGS (25)
  1. LEVOTHYROXINE SODIUM [Suspect]
     Dosage: 50 UG, DAILY
  2. HALOPERIDOL [Suspect]
     Dosage: 20 MG, AT BEDTIME
  3. FUROSEMIDE [Suspect]
     Dosage: 40 MG, DAILY
  4. ALENDRONATE SODIUM [Suspect]
     Dosage: 70 MG, WEEKLY
  5. TRAZODONE HYDROCHLORIDE [Suspect]
     Dosage: 200 MG, DAILY, AT BEDTIME
  6. TRAZODONE HCL [Suspect]
     Dosage: 75 MG, 2X/DAY
  7. LOPERAMIDE HCL [Suspect]
     Dosage: 2 MG, (100 TABLETS/MONTH) AS NEEDED
  8. OMEPRAZOLE [Suspect]
     Dosage: 20 MG, 2X/DAY
  9. CELECOXIB [Suspect]
     Dosage: 200 MG, 2X/DAY
  10. BACTRIM [Suspect]
     Dosage: 160/800 UG DAILY FOR THE PAST 3 MONTHS
  11. CYCLOPHOSPHAMIDE [Suspect]
     Dosage: 10 MG, AS NEEDED
  12. SUMATRIPTAN SUCCINATE [Suspect]
     Dosage: 50 MG, AS NEEDED
  13. PREDNISONE [Suspect]
     Dosage: 7.5 MG, 1X/DAY
  14. BUDESONIDE [Suspect]
     Dosage: 200 UG, 2 INHALATIONS DAILY
  15. ESTROGENS CONJUGATED [Suspect]
     Dosage: 1.3 MG, DAILY
  16. RISPERIDONE [Suspect]
     Dosage: 2 MG IN THE MORNING, 3 MG AT BEDTIME
  17. ALBUTEROL SULFATE AUTOHALER [Suspect]
     Dosage: 100 UG, AS NEEDED
  18. LORAZEPAM [Concomitant]
     Dosage: 2 MG, AT BED TIME
  19. ATORVASTATIN CALCIUM [Concomitant]
     Dosage: 10 MG, DAILY
  20. QUETIAPINE FUMARATE [Suspect]
     Dosage: 400 MG/DAY, AT BEDTIME
  21. HYDROXYZINE HCL [Suspect]
     Dosage: 25 MG, 2X/DAY
  22. FLUCONAZOLE [Suspect]
     Dosage: 150 MG, DAILY,  5-6 TIMES IN PAST 6 MONTHS
  23. DESIPRAMIDE HCL [Suspect]
     Dosage: 25 MG, 2X/DAY
  24. MOMETASONE FUROATE [Suspect]
     Dosage: 0.05 %,  2 SPRAYS TWICE DAILY
  25. HYDROXYCHLOROQUINE SULFATE [Suspect]
     Dosage: 200 MG, 2X/DAY

REACTIONS (1)
  - NEUROLEPTIC MALIGNANT SYNDROME [None]
